FAERS Safety Report 17143345 (Version 1)
Quarter: 2019Q4

REPORT INFORMATION
  Report Type: Spontaneous
  Country: US (occurrence: US)
  Receive Date: 20191211
  Receipt Date: 20191211
  Transmission Date: 20200122
  Serious: No
  Sender: FDA-Public Use
  Company Number: US-AMERICAN REGENT INC-2019001708

PATIENT
  Sex: Female

DRUGS (3)
  1. VENOFER [Suspect]
     Active Substance: IRON SUCROSE
     Dosage: UNK UNK, SINGLE
     Route: 065
     Dates: start: 20190805, end: 20190805
  2. VENOFER [Suspect]
     Active Substance: IRON SUCROSE
     Indication: PRODUCT USED FOR UNKNOWN INDICATION
     Dosage: UNK
     Route: 065
     Dates: start: 2016, end: 2016
  3. VENOFER [Suspect]
     Active Substance: IRON SUCROSE
     Dosage: UNK UNK, SINGLE
     Route: 065
     Dates: start: 2019, end: 2019

REACTIONS (2)
  - Vaginal haemorrhage [Not Recovered/Not Resolved]
  - Urticaria [Not Recovered/Not Resolved]

NARRATIVE: CASE EVENT DATE: 2019
